FAERS Safety Report 25890895 (Version 1)
Quarter: 2025Q4

REPORT INFORMATION
  Report Type: Spontaneous
  Country: US (occurrence: US)
  Receive Date: 20251007
  Receipt Date: 20251007
  Transmission Date: 20260117
  Serious: No
  Sender: PFIZER
  Company Number: US-PFIZER INC-PV202300190706

PATIENT
  Age: 68 Year
  Sex: Female

DRUGS (1)
  1. IBRANCE [Suspect]
     Active Substance: PALBOCICLIB
     Indication: Breast cancer metastatic
     Dosage: TAKE 1 CAPSULE BY MOUTH DAILY WITH FOOD FOR 21 DAYS, FOLLOWED BY 7 DAYS OFF, REPEATED EVERY 28 DAYS
     Route: 048

REACTIONS (1)
  - Arthritis [Unknown]
